FAERS Safety Report 6213426-0 (Version None)
Quarter: 2009Q2

REPORT INFORMATION
  Report Type: 
  Country: None (occurrence: None)
  Receive Date: 20090603
  Receipt Date: 20090528
  Transmission Date: 20091009
  Serious: Yes (Hospitalization)
  Sender: FDA-Public Use
  Company Number: PHHO2009DE05774

PATIENT
  Sex: Female
  Weight: 64 kg

DRUGS (8)
  1. ZOLEDRONIC ACID [Suspect]
     Indication: BREAST CANCER
     Dosage: 4MG EVERY 3 MONTHS
     Route: 042
     Dates: start: 20070807
  2. VITAMIN D [Concomitant]
  3. CALCIUM [Concomitant]
  4. FLUOROURACIL [Concomitant]
  5. EPIRUBICIN [Concomitant]
  6. CYCLOPHOSPHAMIDE [Concomitant]
  7. DOCETAXEL [Concomitant]
  8. GEMCITABINE [Concomitant]

REACTIONS (2)
  - FOOT FRACTURE [None]
  - FOOT OPERATION [None]
